FAERS Safety Report 25512216 (Version 1)
Quarter: 2025Q3

REPORT INFORMATION
  Report Type: Spontaneous
  Country: US (occurrence: US)
  Receive Date: 20250703
  Receipt Date: 20250703
  Transmission Date: 20251020
  Serious: Yes (Hospitalization)
  Sender: CALLIDITAS THERAPEUTICS AB
  Company Number: US-Calliditas-2025CAL01215

PATIENT
  Age: 79 Year
  Sex: Female

DRUGS (14)
  1. TARPEYO [Suspect]
     Active Substance: BUDESONIDE
     Indication: IgA nephropathy
     Route: 048
     Dates: start: 20250314
  2. AMLODIPINE [Concomitant]
     Active Substance: AMLODIPINE BESYLATE
  3. ARANESP [Concomitant]
     Active Substance: DARBEPOETIN ALFA
  4. CENTRUM [ASCORBIC ACID;BETACAROTENE;COLECALCIFEROL;FOLIC ACID;MINER... [Concomitant]
  5. LEXAPRO [Concomitant]
     Active Substance: ESCITALOPRAM OXALATE
  6. LEVOTHYROXINE [Concomitant]
     Active Substance: LEVOTHYROXINE
  7. LOSARTAN [Concomitant]
     Active Substance: LOSARTAN
  8. PANTOPRAZOLE [Concomitant]
     Active Substance: PANTOPRAZOLE
  9. CRESTOR [Concomitant]
     Active Substance: ROSUVASTATIN CALCIUM
  10. TOPAMAX [Concomitant]
     Active Substance: TOPIRAMATE
  11. SODIUM BICARBONATE [Concomitant]
     Active Substance: SODIUM BICARBONATE
  12. BUMEX [Concomitant]
     Active Substance: BUMETANIDE
  13. TYLENOL [Concomitant]
     Active Substance: ACETAMINOPHEN
  14. JARDIANCE [Concomitant]
     Active Substance: EMPAGLIFLOZIN

REACTIONS (7)
  - Fall [Recovering/Resolving]
  - Muscle spasms [Not Recovered/Not Resolved]
  - Pain [Recovering/Resolving]
  - Contusion [Recovering/Resolving]
  - Headache [Recovering/Resolving]
  - Product dose omission issue [Recovering/Resolving]
  - Peripheral swelling [Not Recovered/Not Resolved]

NARRATIVE: CASE EVENT DATE: 20250430
